FAERS Safety Report 5577370-4 (Version None)
Quarter: 2007Q4

REPORT INFORMATION
  Report Type: 
  Country: None (occurrence: None)
  Receive Date: 20071130
  Receipt Date: 20070926
  Transmission Date: 20080405
  Serious: No
  Sender: FDA-Public Use
  Company Number: US200709006980

PATIENT
  Age: 61 Year
  Sex: Female
  Weight: 102 kg

DRUGS (15)
  1. BYETTA [Suspect]
     Indication: TYPE 2 DIABETES MELLITUS
     Dosage: 5 UG, 2/D, SUBCUTANEOUS; 10 UG, 2/D, SUBCUTANEOUS
     Route: 057
     Dates: start: 20070401, end: 20070101
  2. BYETTA [Suspect]
     Indication: TYPE 2 DIABETES MELLITUS
     Dosage: 5 UG, 2/D, SUBCUTANEOUS; 10 UG, 2/D, SUBCUTANEOUS
     Route: 057
     Dates: start: 20070801, end: 20070101
  3. BYETTA [Suspect]
     Indication: TYPE 2 DIABETES MELLITUS
     Dosage: 5 UG, 2/D, SUBCUTANEOUS; 10 UG, 2/D, SUBCUTANEOUS
     Route: 057
     Dates: start: 20070301, end: 20070401
  4. BYETTA [Suspect]
     Indication: TYPE 2 DIABETES MELLITUS
     Dosage: 5 UG, 2/D, SUBCUTANEOUS; 10 UG, 2/D, SUBCUTANEOUS
     Route: 057
     Dates: start: 20070101, end: 20070901
  5. BYETTA [Suspect]
     Indication: TYPE 2 DIABETES MELLITUS
     Dosage: 5 UG, 2/D, SUBCUTANEOUS; 10 UG, 2/D, SUBCUTANEOUS
     Route: 057
     Dates: start: 20070901
  6. LANTUS [Concomitant]
  7. GLIPIZIDE [Concomitant]
  8. METFORMIN HCL [Concomitant]
  9. ACTOS [Concomitant]
  10. PHYTONADIONE [Concomitant]
  11. POTASSIUM (POTASSIUM) [Concomitant]
  12. OMEGA 3 (FISH OIL) [Concomitant]
  13. CALCIUM (CALCIUM) [Concomitant]
  14. PREVACID [Concomitant]
  15. NEXIUM [Concomitant]

REACTIONS (14)
  - BLOOD GLUCOSE DECREASED [None]
  - COLD SWEAT [None]
  - DIVERTICULUM [None]
  - FEELING COLD [None]
  - GASTROENTERITIS [None]
  - GROIN PAIN [None]
  - JOINT STIFFNESS [None]
  - NAUSEA [None]
  - NERVOUSNESS [None]
  - NEUROMA [None]
  - OEDEMA PERIPHERAL [None]
  - PIGMENTATION DISORDER [None]
  - SKIN DISORDER [None]
  - WEIGHT DECREASED [None]
